FAERS Safety Report 4290422-4 (Version None)
Quarter: 2004Q1

REPORT INFORMATION
  Report Type: 
  Country: None (occurrence: None)
  Receive Date: 20040209
  Receipt Date: 20040130
  Transmission Date: 20041129
  Serious: Yes (Other)
  Sender: FDA-Public Use
  Company Number: 2004196652GB

PATIENT
  Age: 28 Year
  Sex: Female
  Weight: 75 kg

DRUGS (4)
  1. DEPO-PROVERA [Suspect]
     Indication: CONTRACEPTION
     Dosage: SEE IMAGE
     Dates: start: 19951011, end: 19951011
  2. DEPO-PROVERA [Suspect]
     Indication: CONTRACEPTION
     Dosage: SEE IMAGE
     Dates: start: 20010219, end: 20010219
  3. MINULET (GESTODENE) [Concomitant]
  4. TRIMETHOPRIM [Concomitant]

REACTIONS (1)
  - ANGIONEUROTIC OEDEMA [None]
